FAERS Safety Report 10187177 (Version 1)
Quarter: 2014Q2

REPORT INFORMATION
  Report Type: Spontaneous
  Country: US (occurrence: None)
  Receive Date: 20140520
  Receipt Date: 20140520
  Transmission Date: 20141212
  Serious: Yes (Death, Hospitalization)
  Sender: FDA-Public Use
  Company Number: 2014P1004325

PATIENT
  Age: 16 Year
  Sex: Male

DRUGS (6)
  1. INTERFERON GAMMA [Suspect]
     Indication: CHRONIC GRANULOMATOUS DISEASE
  2. INTERFERON GAMMA [Suspect]
     Indication: PROPHYLAXIS
  3. TRIMETHOPRIM-SULFAMETHOXAZOLE [Suspect]
     Indication: CHRONIC GRANULOMATOUS DISEASE
  4. TRIMETHOPRIM-SULFAMETHOXAZOLE [Suspect]
     Indication: PROPHYLAXIS
  5. VORICONAZOLE [Suspect]
     Indication: CHRONIC GRANULOMATOUS DISEASE
  6. VORICONAZOLE [Suspect]
     Indication: PROPHYLAXIS

REACTIONS (14)
  - Pyrexia [None]
  - Dyspnoea [None]
  - Fatigue [None]
  - White blood cell count decreased [None]
  - Haemoglobin decreased [None]
  - Platelet count decreased [None]
  - Alanine aminotransferase increased [None]
  - Aspartate aminotransferase increased [None]
  - Hepatic failure [None]
  - Renal failure [None]
  - Disseminated intravascular coagulation [None]
  - Sepsis [None]
  - Bronchopneumonia [None]
  - Pneumonia necrotising [None]
